FAERS Safety Report 6347486-3 (Version None)
Quarter: 2009Q3

REPORT INFORMATION
  Report Type: 
  Country: None (occurrence: None)
  Receive Date: 20090910
  Receipt Date: 20090902
  Transmission Date: 20100115
  Serious: Yes (Other)
  Sender: FDA-Public Use
  Company Number: US-ELI_LILLY_AND_COMPANY-US200909000780

PATIENT
  Sex: Male

DRUGS (10)
  1. HUMULIN 70/30 [Suspect]
     Dosage: UNK, UNK
     Dates: start: 20080101
  2. GLIMEPIRIDE [Concomitant]
     Dosage: 1 MG, UNK
  3. AVAPRO [Concomitant]
  4. PLAVIX [Concomitant]
     Dosage: 75 MG, QOD
  5. ASPIRIN [Concomitant]
     Dosage: 81 MG, QOD
  6. PRAVACHOL [Concomitant]
     Dosage: 80 MG, UNK
  7. NORVASC [Concomitant]
     Dosage: 10 MG, EACH MORNING
  8. NORVASC [Concomitant]
     Dosage: 5 MG, EACH EVENING
  9. CARVEDILOL [Concomitant]
     Dosage: 12.5 MG, UNK
  10. HYDROCHLOROTHIAZIDE [Concomitant]

REACTIONS (4)
  - BLOOD GLUCOSE DECREASED [None]
  - BLOOD GLUCOSE INCREASED [None]
  - EYE HAEMORRHAGE [None]
  - VISUAL ACUITY REDUCED [None]
